FAERS Safety Report 10027362 (Version 3)
Quarter: 2014Q1

REPORT INFORMATION
  Report Type: Report from Study
  Country: DE (occurrence: DE)
  Receive Date: 20140321
  Receipt Date: 20140325
  Transmission Date: 20141002
  Serious: Yes (Hospitalization, Other)
  Sender: FDA-Public Use
  Company Number: DE-ROCHE-1282991

PATIENT
  Age: 64 Year
  Sex: Male
  Weight: 90.4 kg

DRUGS (8)
  1. MYCOPHENOLATE MOFETIL [Suspect]
     Indication: RENAL TRANSPLANT
     Dosage: LAST DOSE PRIOR TO SAE: 18/SEP/2012
     Route: 048
     Dates: start: 20120822
  2. MYCOPHENOLATE MOFETIL [Suspect]
     Dosage: LAST DOSE PRIOR TO SAE 01/OCT/2012
     Route: 048
     Dates: start: 20120912, end: 20121015
  3. TACROLIMUS [Suspect]
     Indication: RENAL TRANSPLANT
     Dosage: LAST DOSE PRIOR TO SAE: 18/SEP/2012 (10 MG)?DATE OF LAST DOSE PRIOR TO ONSET OF SAE: 01/OCT/2012 (7
     Route: 048
     Dates: start: 20120822
  4. THYMOGLOBULIN [Suspect]
     Indication: RENAL TRANSPLANT
     Dosage: DATE OF LAST DOSE PRIOR TO ONSET OF SAE: 26/AUG/2012
     Route: 042
     Dates: start: 20120822, end: 20120826
  5. THYMOGLOBULIN [Suspect]
     Route: 048
     Dates: start: 20120918
  6. PREDNISOLONE [Suspect]
     Indication: RENAL TRANSPLANT
     Dosage: DATE OF LAST DOSE PRIOR TO ONSET OF SAE: 28/AUG/2012
     Route: 048
     Dates: start: 20120822, end: 20120827
  7. PREDNISOLONE [Suspect]
     Dosage: DATE OF LAST DOSE PRIOR TO ONSET OF SAE: 24/OCT/2012 (5 MG)
     Route: 048
     Dates: start: 20120913
  8. MYOCHOLINE [Concomitant]
     Route: 065
     Dates: start: 20120917

REACTIONS (10)
  - Neurogenic bladder [Recovered/Resolved with Sequelae]
  - Urosepsis [Recovered/Resolved with Sequelae]
  - Blood creatinine increased [Recovered/Resolved with Sequelae]
  - Pancytopenia [Recovering/Resolving]
  - Renal failure acute [Recovering/Resolving]
  - Urinary tract infection [Recovering/Resolving]
  - Clostridium difficile colitis [Recovering/Resolving]
  - Enterococcal sepsis [Recovering/Resolving]
  - Pyrexia [Recovering/Resolving]
  - Urinary tract obstruction [Recovered/Resolved]
